FAERS Safety Report 26182419 (Version 1)
Quarter: 2025Q4

REPORT INFORMATION
  Report Type: Spontaneous
  Country: US (occurrence: US)
  Receive Date: 20251221
  Receipt Date: 20251221
  Transmission Date: 20260117
  Serious: No
  Sender: CSL BEHRING
  Company Number: US-BEH-2025228453

PATIENT
  Sex: Female

DRUGS (9)
  1. PRIVIGEN [Suspect]
     Active Substance: HUMAN IMMUNOGLOBULIN G
     Indication: Immunodeficiency common variable
     Dosage: 35 G ON DAY 1, ( TOTAL OF 115GRAMS) ONCE EVERY 6 WEEKS
     Route: 042
     Dates: start: 202502
  2. PRIVIGEN [Suspect]
     Active Substance: HUMAN IMMUNOGLOBULIN G
     Dosage: 40 G ON DAY 2, ( TOTAL OF 115GRAMS) ONCE EVERY 6 WEEKS
     Route: 042
     Dates: start: 202502
  3. PRIVIGEN [Suspect]
     Active Substance: HUMAN IMMUNOGLOBULIN G
     Dosage: 40 G ON DAY 3, ( TOTAL OF 115GRAMS) ONCE EVERY 6 WEEKS
     Route: 042
     Dates: start: 202502
  4. ACETAMINOPHEN [Concomitant]
     Active Substance: ACETAMINOPHEN
  5. LMX 4 [Concomitant]
     Dosage: CRM
  6. SODIUM CHLORIDE [Concomitant]
     Active Substance: SODIUM CHLORIDE
     Dosage: FLUSH 5 ML
  7. DIPHENHYDRAMINE [Concomitant]
     Active Substance: DIPHENHYDRAMINE
     Dosage: SDV (1ML/VL)
  8. HEPARIN [Concomitant]
     Active Substance: HEPARIN SODIUM
     Dosage: L/L FLUSH SYR 5 ML
  9. SODIUM CHLORATE [Concomitant]
     Active Substance: SODIUM CHLORATE
     Dosage: 250ML/BAG

REACTIONS (4)
  - Palpitations [Unknown]
  - Dehydration [Unknown]
  - Vomiting [Unknown]
  - Musculoskeletal stiffness [Unknown]
